FAERS Safety Report 10164701 (Version 2)
Quarter: 2014Q2

REPORT INFORMATION
  Report Type: Spontaneous
  Country: US (occurrence: US)
  Receive Date: 20140510
  Receipt Date: 20140510
  Transmission Date: 20141212
  Serious: No
  Sender: FDA-Public Use
  Company Number: US201212007920

PATIENT
  Age: 76 Year
  Sex: Female

DRUGS (5)
  1. BYETTA PEN DISPOSABLE [Suspect]
     Indication: TYPE 2 DIABETES MELLITUS
     Dosage: LOT NO:C009457A, C033459A, C126030A EXPDT:MAY14,JUL14,01FEB15
     Route: 058
     Dates: start: 2005
  2. EXENATIDE 10MCG PEN, DISPOSABLE DEVICE [Concomitant]
  3. EXENATIDE 10MCG PEN, DISPOSABLE DEVICE [Concomitant]
  4. METFORMIN HCL [Suspect]
     Indication: DIABETES MELLITUS
  5. GLIMEPIRIDE [Suspect]
     Indication: DIABETES MELLITUS

REACTIONS (3)
  - Blood glucose increased [Not Recovered/Not Resolved]
  - Drug dose omission [Unknown]
  - Product quality issue [Unknown]
